FAERS Safety Report 20129622 (Version 3)
Quarter: 2021Q4

REPORT INFORMATION
  Report Type: Report from Study
  Country: CN (occurrence: CN)
  Receive Date: 20211130
  Receipt Date: 20211210
  Transmission Date: 20220303
  Serious: Yes (Death, Life-Threatening)
  Sender: FDA-Public Use
  Company Number: CN-BoehringerIngelheim-2021-BI-136861

PATIENT
  Age: 42 Year
  Sex: Male
  Weight: 80 kg

DRUGS (6)
  1. TENECTEPLASE [Suspect]
     Active Substance: TENECTEPLASE
     Indication: Ischaemic stroke
     Dosage: 0.25/KG , UNIT: MICROGRAM, CONCENTRATE AND SOLVENT FOR INJECTION DOSE: 20.0 MG POWDER AND SOLVENT
     Route: 017
     Dates: start: 20211104, end: 20211104
  2. HYDROXYETHYL STARCH AND SODIUM CHLORIDE [Concomitant]
     Indication: Cerebral infarction
     Route: 042
     Dates: start: 20211104, end: 20211106
  3. PIPERACILLIN AND TAZOBACTAM [Concomitant]
     Active Substance: PIPERACILLIN SODIUM\TAZOBACTAM SODIUM
     Indication: Pneumonia
     Route: 042
     Dates: start: 20211105, end: 20211106
  4. EPINEPHRINE [Concomitant]
     Active Substance: EPINEPHRINE
     Indication: Cardiac arrest
     Route: 042
     Dates: start: 20211106, end: 20211106
  5. DOPAMINE HYDROCHLORIDE [Concomitant]
     Active Substance: DOPAMINE HYDROCHLORIDE
     Indication: Shock
     Route: 042
     Dates: start: 20211106, end: 20211106
  6. ATROPINE SULFATE [Concomitant]
     Active Substance: ATROPINE SULFATE
     Indication: Bradyarrhythmia
     Route: 042
     Dates: start: 20211106, end: 20211106

REACTIONS (3)
  - Hepatic failure [Fatal]
  - Aortic dissection [Fatal]
  - Cardiac failure [Unknown]

NARRATIVE: CASE EVENT DATE: 20211105
